FAERS Safety Report 21854028 (Version 2)
Quarter: 2025Q2

REPORT INFORMATION
  Report Type: Spontaneous
  Country: US (occurrence: US)
  Receive Date: 20230112
  Receipt Date: 20250626
  Transmission Date: 20250717
  Serious: No
  Sender: PFIZER
  Company Number: US-PFIZER INC-202300009279

PATIENT
  Age: 72 Year
  Sex: Female

DRUGS (4)
  1. XELJANZ [Suspect]
     Active Substance: TOFACITINIB CITRATE
     Indication: Arthritis
     Dosage: 5 MG 1 A DAY
  2. XELJANZ [Suspect]
     Active Substance: TOFACITINIB CITRATE
     Indication: Osteoarthritis
     Dosage: 5 MG TWICE DAILY
  3. XELJANZ [Suspect]
     Active Substance: TOFACITINIB CITRATE
     Dosage: 5 MG, DAILY
  4. XELJANZ [Suspect]
     Active Substance: TOFACITINIB CITRATE
     Dosage: 5 MG, 2X/DAY
     Route: 048

REACTIONS (10)
  - Influenza [Unknown]
  - Upper respiratory tract infection [Unknown]
  - Condition aggravated [Recovering/Resolving]
  - White blood cell count decreased [Unknown]
  - Paraesthesia [Not Recovered/Not Resolved]
  - Sinusitis [Unknown]
  - Antinuclear antibody positive [Unknown]
  - Sensitivity to weather change [Unknown]
  - Drug ineffective for unapproved indication [Unknown]
  - Off label use [Unknown]
